FAERS Safety Report 7092964-5 (Version None)
Quarter: 2010Q4

REPORT INFORMATION
  Report Type: 
  Country: None (occurrence: None)
  Receive Date: 20101110
  Receipt Date: 20101027
  Transmission Date: 20110411
  Serious: No
  Sender: FDA-Public Use
  Company Number: PHHY2010DK60665

PATIENT
  Sex: Female

DRUGS (6)
  1. TASIGNA [Suspect]
     Indication: CHRONIC MYELOID LEUKAEMIA
     Dosage: 200 MG, BID
     Route: 048
     Dates: start: 20100727
  2. TASIGNA [Suspect]
     Dosage: 1 DE IN MORNING AND 2 DF IN AFTERNOON
     Route: 048
     Dates: start: 20100801
  3. TASIGNA [Suspect]
     Dosage: 2 DF IN MORNING AND 2 DF IN AFTERNOON
     Route: 048
     Dates: start: 20100801
  4. VITAMINERAL [Concomitant]
  5. PANTOLOC [Concomitant]
  6. LIVIAL [Concomitant]
     Dosage: EVERY EVENING

REACTIONS (5)
  - CHEST DISCOMFORT [None]
  - FATIGUE [None]
  - GASTROINTESTINAL TRACT IRRITATION [None]
  - INCORRECT DOSE ADMINISTERED [None]
  - RASH PRURITIC [None]
